FAERS Safety Report 17529172 (Version 1)
Quarter: 2020Q1

REPORT INFORMATION
  Report Type: Spontaneous
  Country: US (occurrence: US)
  Receive Date: 20200311
  Receipt Date: 20200311
  Transmission Date: 20200409
  Serious: Yes (Hospitalization)
  Sender: FDA-Public Use
  Company Number: US-HBP-2020US020306

PATIENT
  Sex: Female

DRUGS (1)
  1. VALCHLOR [Suspect]
     Active Substance: MECHLORETHAMINE
     Indication: CUTANEOUS T-CELL LYMPHOMA
     Dosage: THIN FILM, 3/WEEK
     Route: 061
     Dates: start: 20200214

REACTIONS (6)
  - Application site pain [Unknown]
  - Application site erythema [Unknown]
  - Dermatitis [Unknown]
  - Application site pruritus [Unknown]
  - Blister [Unknown]
  - Off label use [Unknown]
